FAERS Safety Report 13228515 (Version 1)
Quarter: 2017Q1

REPORT INFORMATION
  Report Type: Spontaneous
  Country: US (occurrence: US)
  Receive Date: 20170213
  Receipt Date: 20170213
  Transmission Date: 20170428
  Serious: No
  Sender: FDA-Public Use
  Company Number: US-ROCHE-1825354

PATIENT
  Sex: Female

DRUGS (2)
  1. XOLAIR [Suspect]
     Active Substance: OMALIZUMAB
     Indication: MASTOCYTOSIS
     Route: 065
  2. XOLAIR [Suspect]
     Active Substance: OMALIZUMAB
     Indication: URTICARIA

REACTIONS (8)
  - Injection site pain [Unknown]
  - Injection site swelling [Unknown]
  - Ear pain [Unknown]
  - Oropharyngeal pain [Unknown]
  - Vasodilatation [Unknown]
  - Muscle spasms [Unknown]
  - Arthralgia [Unknown]
  - Neck pain [Unknown]
